FAERS Safety Report 13657259 (Version 4)
Quarter: 2018Q1

REPORT INFORMATION
  Report Type: Report from Study
  Country: US (occurrence: US)
  Receive Date: 20170615
  Receipt Date: 20180117
  Transmission Date: 20180508
  Serious: Yes (Hospitalization, Other)
  Sender: FDA-Public Use
  Company Number: US-EISAI MEDICAL RESEARCH-EC-2015-009707

PATIENT
  Age: 69 Year
  Sex: Female

DRUGS (7)
  1. LENVIMA [Suspect]
     Active Substance: LENVATINIB
     Route: 048
     Dates: start: 2017, end: 201711
  2. LENVIMA [Suspect]
     Active Substance: LENVATINIB
     Route: 048
     Dates: start: 2015, end: 20151215
  3. LENVIMA [Suspect]
     Active Substance: LENVATINIB
     Route: 048
     Dates: start: 20150917, end: 201510
  4. LENVIMA [Suspect]
     Active Substance: LENVATINIB
     Route: 048
     Dates: start: 20151216, end: 201602
  5. LENVIMA [Suspect]
     Active Substance: LENVATINIB
     Route: 048
     Dates: start: 2016, end: 20160320
  6. LENVIMA [Suspect]
     Active Substance: LENVATINIB
     Dosage: 10 MG QOD ALTERNATING WITH 4MG
     Route: 048
     Dates: start: 20160321, end: 201706
  7. LENVIMA [Suspect]
     Active Substance: LENVATINIB
     Indication: THYROID CANCER
     Route: 048
     Dates: start: 20150617, end: 20150916

REACTIONS (29)
  - Oropharyngeal pain [Recovered/Resolved]
  - Gait disturbance [Not Recovered/Not Resolved]
  - Myalgia [Not Recovered/Not Resolved]
  - Candida infection [Recovered/Resolved]
  - Headache [Recovered/Resolved]
  - Malaise [Recovered/Resolved]
  - Nervousness [Unknown]
  - Furuncle [Not Recovered/Not Resolved]
  - Contusion [Not Recovered/Not Resolved]
  - Myocardial infarction [Recovering/Resolving]
  - Ear infection [Recovered/Resolved]
  - Blister [Recovered/Resolved]
  - Flatulence [Recovered/Resolved]
  - Dysphagia [Not Recovered/Not Resolved]
  - Cystitis [Recovered/Resolved]
  - Fatigue [Recovered/Resolved]
  - Stomatitis [Recovered/Resolved]
  - Pain [Not Recovered/Not Resolved]
  - Cough [Recovered/Resolved]
  - Hypertension [Recovering/Resolving]
  - Weight decreased [Recovered/Resolved]
  - Glossodynia [Recovered/Resolved]
  - Decreased appetite [Recovered/Resolved]
  - Pain in extremity [Recovered/Resolved]
  - Skin exfoliation [Unknown]
  - Dizziness [Unknown]
  - Asthenia [Recovered/Resolved]
  - Heart rate irregular [Not Recovered/Not Resolved]
  - Muscle spasms [Unknown]

NARRATIVE: CASE EVENT DATE: 201507
